FAERS Safety Report 11970680 (Version 1)
Quarter: 2016Q1

REPORT INFORMATION
  Report Type: Spontaneous
  Country: US (occurrence: None)
  Receive Date: 20160127
  Receipt Date: 20160127
  Transmission Date: 20160526
  Serious: Yes (Other)
  Sender: FDA-Public Use
  Company Number: None

PATIENT
  Age: 8 Year
  Sex: Female
  Weight: 25.4 kg

DRUGS (2)
  1. CEFDINIR SUSP 250MG/5ML [Suspect]
     Active Substance: CEFDINIR
     Indication: INFECTION
     Dosage: 3/4 TSP  PO BID X10 DAYS BID ORAL
     Route: 048
     Dates: start: 20160120, end: 20160120
  2. CEFDINIR SUSP 250MG/5ML [Suspect]
     Active Substance: CEFDINIR
     Indication: PNEUMONIA
     Dosage: 3/4 TSP  PO BID X10 DAYS BID ORAL
     Route: 048
     Dates: start: 20160120, end: 20160120

REACTIONS (2)
  - Rash [None]
  - Urticaria [None]

NARRATIVE: CASE EVENT DATE: 20160120
